FAERS Safety Report 12140181 (Version 1)
Quarter: 2016Q1

REPORT INFORMATION
  Report Type: Spontaneous
  Country: US (occurrence: US)
  Receive Date: 20160303
  Receipt Date: 20160303
  Transmission Date: 20160526
  Serious: No
  Sender: FDA-Public Use
  Company Number: US-BAYER-2016-039288

PATIENT
  Age: 84 Year
  Sex: Female
  Weight: 68.27 kg

DRUGS (2)
  1. ASTELIN [AZELASTINE HYDROCHLORIDE] [Concomitant]
     Active Substance: AZELASTINE HYDROCHLORIDE
  2. MIRALAX [Suspect]
     Active Substance: POLYETHYLENE GLYCOL 3350
     Indication: COLONOSCOPY
     Dosage: UNK
     Route: 048
     Dates: start: 201403, end: 201403

REACTIONS (2)
  - Rash [Recovered/Resolved]
  - Product use issue [None]

NARRATIVE: CASE EVENT DATE: 201403
